FAERS Safety Report 4725635-8 (Version None)
Quarter: 2005Q3

REPORT INFORMATION
  Report Type: 
  Country: None (occurrence: None)
  Receive Date: 20050727
  Receipt Date: 20050524
  Transmission Date: 20060218
  Serious: Yes (Hospitalization, Disabling)
  Sender: FDA-Public Use
  Company Number: US-MERCK-0505USA02913

PATIENT
  Age: 38 Year
  Sex: Female
  Weight: 68 kg

DRUGS (10)
  1. VIOXX [Suspect]
     Indication: BACK PAIN
     Route: 048
     Dates: start: 19990101, end: 20020401
  2. VIOXX [Suspect]
     Route: 048
     Dates: start: 20020429
  3. VIOXX [Suspect]
     Indication: MUSCULOSKELETAL PAIN
     Route: 048
     Dates: start: 19990101, end: 20020401
  4. VIOXX [Suspect]
     Route: 048
     Dates: start: 20020429
  5. AMBIEN [Concomitant]
     Indication: SLEEP DISORDER
     Route: 065
  6. NEURONTIN [Concomitant]
     Indication: PAIN
     Route: 048
  7. VICODIN [Concomitant]
     Indication: PAIN
     Route: 048
  8. SOMA [Concomitant]
     Indication: MUSCLE RELAXANT THERAPY
     Route: 065
  9. PAXIL [Concomitant]
     Indication: PANIC DISORDER
     Route: 065
     Dates: start: 19990101, end: 20020401
  10. PERCOCET [Concomitant]
     Route: 065

REACTIONS (14)
  - ANGINA UNSTABLE [None]
  - ANXIETY [None]
  - BACK PAIN [None]
  - CARDIAC DISORDER [None]
  - CORONARY ARTERY DISEASE [None]
  - DEPRESSION [None]
  - DISTURBANCE IN ATTENTION [None]
  - HAEMATOMA [None]
  - INJURY [None]
  - MYOCARDIAL INFARCTION [None]
  - PANIC ATTACK [None]
  - SLEEP DISORDER [None]
  - SUICIDAL IDEATION [None]
  - THYROID DISORDER [None]
